FAERS Safety Report 22159468 (Version 10)
Quarter: 2024Q1

REPORT INFORMATION
  Report Type: Report from Study
  Country: US (occurrence: US)
  Receive Date: 20230331
  Receipt Date: 20240115
  Transmission Date: 20240410
  Serious: No
  Sender: FDA-Public Use
  Company Number: US-002147023-NVSC2023US070098

PATIENT
  Age: 62 Year
  Sex: Female

DRUGS (1)
  1. KESIMPTA [Suspect]
     Active Substance: OFATUMUMAB
     Indication: Multiple sclerosis
     Dosage: 20 MG, QMO
     Route: 058
     Dates: start: 20221027

REACTIONS (6)
  - Fall [Recovered/Resolved]
  - Contusion [Recovering/Resolving]
  - Gait disturbance [Recovered/Resolved]
  - Peripheral swelling [Not Recovered/Not Resolved]
  - Limb injury [Not Recovered/Not Resolved]
  - Oedema peripheral [Not Recovered/Not Resolved]

NARRATIVE: CASE EVENT DATE: 20230317
